FAERS Safety Report 12759525 (Version 1)
Quarter: 2016Q3

REPORT INFORMATION
  Report Type: Spontaneous
  Country: FR (occurrence: FR)
  Receive Date: 20160919
  Receipt Date: 20160919
  Transmission Date: 20161109
  Serious: Yes (Hospitalization)
  Sender: FDA-Public Use
  Company Number: FR-PFIZER INC-2016418093

PATIENT
  Age: 40 Year
  Sex: Female

DRUGS (27)
  1. LINEZOLID. [Concomitant]
     Active Substance: LINEZOLID
     Dosage: 600 MG, 2X/DAY EVERY 12 HOURS
     Route: 048
     Dates: start: 20160713
  2. PERINDOPRIL [Concomitant]
     Active Substance: PERINDOPRIL
     Dosage: 2 MG, 1X/DAY
     Route: 048
  3. DOXORUBICIN [Concomitant]
     Active Substance: DOXORUBICIN
     Dosage: 50 MG/M2, SINGLE ON D4 H9
     Dates: start: 20160512, end: 20160526
  4. DEPO-MEDROL [Concomitant]
     Active Substance: METHYLPREDNISOLONE ACETATE
     Dosage: 40 MG, CYCLIC ON D1, D8, AND D15
     Dates: start: 20160512, end: 20160526
  5. DEPO-MEDROL [Concomitant]
     Active Substance: METHYLPREDNISOLONE ACETATE
     Dosage: UNK, SINGLE ON D9
     Dates: start: 201607
  6. METHOTREXATE. [Concomitant]
     Active Substance: METHOTREXATE
     Dosage: 15 MG, SINGLE
     Route: 037
     Dates: start: 20160506, end: 20160506
  7. VINCRISTINE [Concomitant]
     Active Substance: VINCRISTINE
     Dosage: 2 MG, CYCLIC ON D4 H8 AND D11
     Dates: start: 20160512, end: 20160526
  8. IMIPENEM [Concomitant]
     Active Substance: IMIPENEM
     Dosage: 1 G, 2X/DAY
     Dates: start: 20160719
  9. ARACYTINE [Suspect]
     Active Substance: CYTARABINE
     Dosage: 3000 MG/M2, EVERY 12 HOURS ON D2 AND D3
     Dates: start: 201607
  10. ICLUSIG [Concomitant]
     Active Substance: PONATINIB
     Dosage: 30 MG, DAILY
     Route: 048
     Dates: start: 20160506
  11. ICLUSIG [Concomitant]
     Active Substance: PONATINIB
     Dosage: 15 MG, ON MONDAYS, WEDNESDAYS, AND FRIDAYS
     Dates: start: 20160629, end: 20160715
  12. CYCLOPHOSPHAMIDE. [Concomitant]
     Active Substance: CYCLOPHOSPHAMIDE
     Dosage: 300 MG/M2, CYCLIC D1 H12 - D2 H0 AND H12 - D3 H0 AND H12 - D4 H0
     Dates: start: 20160512, end: 20160526
  13. AMIKACIN [Concomitant]
     Active Substance: AMIKACIN
     Dosage: 1 G, 1X/DAY
     Route: 042
     Dates: start: 20160720, end: 20160722
  14. ALLOPURINOL. [Concomitant]
     Active Substance: ALLOPURINOL
     Dosage: 300 MG, 1X/DAY
     Route: 048
  15. VALACICLOVIR [Concomitant]
     Active Substance: VALACYCLOVIR HYDROCHLORIDE
     Dosage: 500 MG, 2X/DAY EVERY 12 HOURS
     Route: 048
     Dates: start: 201605
  16. ARACYTINE [Suspect]
     Active Substance: CYTARABINE
     Indication: ACUTE LYMPHOCYTIC LEUKAEMIA
     Dosage: 4833 MG, 2X/DAY
     Route: 042
     Dates: start: 20160717, end: 20160718
  17. ARACYTINE [Suspect]
     Active Substance: CYTARABINE
     Dosage: 40 MG, CYCLIC ON D1, D8, AND D15
     Dates: start: 20160512, end: 20160526
  18. ARACYTINE [Suspect]
     Active Substance: CYTARABINE
     Dosage: UNK, SINGLE ON D9
     Dates: start: 201607
  19. ICLUSIG [Concomitant]
     Active Substance: PONATINIB
     Dosage: UNK
     Route: 048
     Dates: start: 20160512, end: 20160601
  20. VFEND [Concomitant]
     Active Substance: VORICONAZOLE
     Dosage: 200 MG, 2X/DAY EVERY 12 HOURS
     Route: 048
     Dates: start: 201606
  21. ISOPTIN [Concomitant]
     Active Substance: VERAPAMIL HYDROCHLORIDE
     Dosage: 120 MG, 2X/DAY EVERY 12 HOURS
     Route: 048
  22. METHOTREXATE. [Concomitant]
     Active Substance: METHOTREXATE
     Dosage: 15 MG, CYCLIC ON D1, D8, AND D15
     Dates: start: 20160512, end: 20160526
  23. METHOTREXATE. [Concomitant]
     Active Substance: METHOTREXATE
     Dosage: UNK, SINGLE ON D9
     Dates: start: 201607
  24. TAZOCILLINE [Concomitant]
     Active Substance: PIPERACILLIN SODIUM\TAZOBACTAM SODIUM
     Dosage: 4 G, 3X/DAY
     Route: 042
     Dates: start: 20160718, end: 20160719
  25. LINEZOLID. [Concomitant]
     Active Substance: LINEZOLID
     Dosage: 600 MG, 2X/DAY IN THE MORNING AND IN THE EVENING
     Route: 048
     Dates: start: 20160715
  26. METHOTREXATE. [Concomitant]
     Active Substance: METHOTREXATE
     Dosage: 1000 MG/M2, ON D1
     Dates: start: 201607
  27. METHOTREXATE (METHOTREXATE SODIUM) [Suspect]
     Active Substance: METHOTREXATE SODIUM
     Indication: ACUTE LYMPHOCYTIC LEUKAEMIA
     Dosage: 1611 MG, SINGLE ON D1
     Route: 042
     Dates: start: 20160716

REACTIONS (2)
  - Encephalitis [Recovered/Resolved]
  - Capillary leak syndrome [Recovered/Resolved]

NARRATIVE: CASE EVENT DATE: 20160721
